FAERS Safety Report 14781982 (Version 1)
Quarter: 2018Q2

REPORT INFORMATION
  Report Type: Spontaneous
  Country: US (occurrence: US)
  Receive Date: 20180420
  Receipt Date: 20180420
  Transmission Date: 20180711
  Serious: No
  Sender: FDA-Public Use
  Company Number: US-TEVA-813727ACC

PATIENT
  Sex: Female

DRUGS (1)
  1. WARFARIN SODIUM 40-145 [Suspect]
     Active Substance: WARFARIN SODIUM

REACTIONS (1)
  - Alopecia [Unknown]
